FAERS Safety Report 17732023 (Version 1)
Quarter: 2020Q2

REPORT INFORMATION
  Report Type: Spontaneous
  Country: DE (occurrence: DE)
  Receive Date: 20200501
  Receipt Date: 20200501
  Transmission Date: 20200714
  Serious: Yes (Death, Hospitalization, Other)
  Sender: FDA-Public Use
  Company Number: DE-TEVA-2020-DE-1227580

PATIENT
  Age: 80 Year
  Sex: Female
  Weight: 75 kg

DRUGS (9)
  1. KALIUM VERLA [Concomitant]
     Active Substance: POTASSIUM CITRATE
     Dosage: 1 DOSAGE FORMS DAILY; 1-0-0-0
  2. FULVESTRANT. [Suspect]
     Active Substance: FULVESTRANT
     Route: 065
  3. SPIRONOLACTON [Concomitant]
     Active Substance: SPIRONOLACTONE
     Dosage: 25 MILLIGRAM DAILY; 1-0-0-0
  4. APIXABAN [Concomitant]
     Active Substance: APIXABAN
     Dosage: 5 MILLIGRAM DAILY;  2.5 MILLIGRAM1-0-1-0
  5. BISOPROLOL [Suspect]
     Active Substance: BISOPROLOL
     Dosage: 2.5 MG, 2-0-1-0: UNIT DOSE :7.5 MILLIGRAM
     Route: 065
  6. METAMIZOL [Concomitant]
     Active Substance: METAMIZOLE SODIUM
     Dosage: 2000 MILLIGRAM DAILY;  1-1-1-1
  7. ACETYLSALICYSAURE [Concomitant]
     Dosage: 100 MILLIGRAM DAILY;  1-0-0-0
  8. METOCLOPRAMID [Concomitant]
     Active Substance: METOCLOPRAMIDE
  9. TORASEMID [Concomitant]
     Active Substance: TORSEMIDE
     Dosage: 10 MG, 2-1-0-0:UNIT DOSE :30 MILLIGRAM

REACTIONS (8)
  - Dyspnoea [Unknown]
  - General physical health deterioration [Unknown]
  - Atrial fibrillation [Unknown]
  - Oedema peripheral [Unknown]
  - Arrhythmia [Unknown]
  - Painful respiration [Unknown]
  - Asthenia [Unknown]
  - Decreased appetite [Unknown]
